FAERS Safety Report 5640428-5 (Version None)
Quarter: 2008Q1

REPORT INFORMATION
  Report Type: 
  Country: None (occurrence: None)
  Receive Date: 20080227
  Receipt Date: 20080219
  Transmission Date: 20080703
  Serious: Yes (Other)
  Sender: FDA-Public Use
  Company Number: JP-BAYER-200810223BYL

PATIENT
  Age: 85 Year
  Sex: Female
  Weight: 50 kg

DRUGS (5)
  1. ASPIRIN [Suspect]
     Indication: ANGINA PECTORIS
     Dosage: TOTAL DAILY DOSE: 100 MG  UNIT DOSE: 100 MG
     Route: 048
     Dates: start: 20070802
  2. SIGMART [Suspect]
     Indication: ANGINA PECTORIS
     Dosage: TOTAL DAILY DOSE: 15 MG
     Route: 048
     Dates: start: 20070802
  3. LASIX [Suspect]
     Indication: CARDIAC FAILURE CONGESTIVE
     Dosage: TOTAL DAILY DOSE: 20 MG
     Route: 048
     Dates: start: 20070804
  4. NORVASC [Concomitant]
     Route: 048
  5. CRESTOR [Concomitant]
     Route: 048

REACTIONS (1)
  - LIVER DISORDER [None]
